FAERS Safety Report 16316917 (Version 5)
Quarter: 2019Q3

REPORT INFORMATION
  Report Type: Spontaneous
  Country: CA (occurrence: CA)
  Receive Date: 20190515
  Receipt Date: 20190720
  Transmission Date: 20191004
  Serious: Yes (Hospitalization, Other)
  Sender: FDA-Public Use
  Company Number: CA-CELLTRION INC.-2019CA021079

PATIENT

DRUGS (13)
  1. ZINC. [Concomitant]
     Active Substance: ZINC
     Dosage: UNK
     Route: 065
  2. VENLAFAXINE XR [Concomitant]
     Active Substance: VENLAFAXINE HYDROCHLORIDE
     Dosage: UNK (75 MG + 37.5 MG)
     Route: 065
  3. VITAMIN B12 [Concomitant]
     Active Substance: CYANOCOBALAMIN
     Dosage: UNK
     Route: 065
  4. NAPROXEN. [Concomitant]
     Active Substance: NAPROXEN
     Dosage: 500 MG, 2X/DAY (BID)
     Route: 048
     Dates: start: 201711
  5. CONSTELLA [Concomitant]
     Active Substance: LINACLOTIDE
     Dosage: UNK, 1X/DAY (OD)
     Route: 048
     Dates: start: 20190624
  6. PNEUMOVAX-23 [Concomitant]
     Dosage: UNK
     Route: 065
     Dates: start: 20190625, end: 20190625
  7. GARLIC. [Concomitant]
     Active Substance: GARLIC
     Dosage: UNK
     Route: 065
  8. VENLAFAXINE XR [Concomitant]
     Active Substance: VENLAFAXINE HYDROCHLORIDE
     Dosage: UNK (75 MG + 37.5 MG)
     Route: 065
  9. INFLECTRA [Suspect]
     Active Substance: INFLIXIMAB-DYYB
     Indication: ANKYLOSING SPONDYLITIS
     Dosage: 5 MG/KG Q (EVERY) 0, 2, 6 WEEKS, THEN EVERY 6 WEEKS
     Route: 042
     Dates: start: 20190411, end: 20190411
  10. PMS BETAHISTINE [Concomitant]
     Dosage: UNK
     Route: 048
  11. INFLECTRA [Suspect]
     Active Substance: INFLIXIMAB-DYYB
     Dosage: 5 MG/KG Q (EVERY) 0, 2, 6 WEEKS, THEN EVERY 6 WEEKS
     Route: 042
     Dates: start: 20190425
  12. INFLECTRA [Suspect]
     Active Substance: INFLIXIMAB-DYYB
     Dosage: 5 MG/KG Q (EVERY) 0, 2, 6 WEEKS, THEN EVERY 6 WEEKS
     Route: 042
     Dates: start: 20190706
  13. VITAMIN D [Concomitant]
     Active Substance: VITAMIN D NOS
     Dosage: UNK, 1X/DAY (OD)
     Route: 048

REACTIONS (9)
  - Oropharyngeal pain [Unknown]
  - Abdominal pain [Unknown]
  - Abdominal distension [Unknown]
  - Neurogenic shock [Unknown]
  - Constipation [Unknown]
  - Diarrhoea [Unknown]
  - Nasal congestion [Unknown]
  - Headache [Unknown]
  - Haematochezia [Unknown]

NARRATIVE: CASE EVENT DATE: 2019
